FAERS Safety Report 5391203-0 (Version None)
Quarter: 2007Q3

REPORT INFORMATION
  Report Type: 
  Country: None (occurrence: None)
  Receive Date: 20070717
  Receipt Date: 20070710
  Transmission Date: 20080115
  Serious: Yes (Hospitalization)
  Sender: FDA-Public Use
  Company Number: 2007AL002734

PATIENT
  Age: 73 Year
  Sex: Female

DRUGS (4)
  1. DILTIAZEM HCL [Suspect]
     Indication: HYPERTENSION
     Dosage: 240 MG; ; PO
     Route: 048
  2. OXYTROL [Concomitant]
  3. COLESTIPOL HYDROCHLORIDE [Concomitant]
  4. ETODOLAC [Concomitant]

REACTIONS (2)
  - FALL [None]
  - THROMBOSIS [None]
